FAERS Safety Report 9743235 (Version 1)
Quarter: 2013Q4

REPORT INFORMATION
  Report Type: Spontaneous
  Country: US (occurrence: US)
  Receive Date: 20131210
  Receipt Date: 20131210
  Transmission Date: 20140711
  Serious: No
  Sender: FDA-Public Use
  Company Number: US-GILEAD-2009-0025124

PATIENT
  Sex: Female

DRUGS (15)
  1. LETAIRIS [Suspect]
     Indication: PULMONARY ARTERIAL HYPERTENSION
     Route: 048
     Dates: start: 20090210
  2. LASIX [Concomitant]
  3. CEFDINIR [Concomitant]
  4. VENTOLIN [Concomitant]
  5. KLOR-CON [Concomitant]
  6. METHOTREXATE [Concomitant]
  7. PRILOSEC [Concomitant]
  8. TYLENOL [Concomitant]
  9. PREDNISONE [Concomitant]
  10. PLAVIX [Concomitant]
  11. YAS-28 [Concomitant]
  12. PERCOCET [Concomitant]
  13. IBUPROFEN [Concomitant]
  14. FOLIC ACID [Concomitant]
  15. ASPIRIN [Concomitant]

REACTIONS (1)
  - Dyspnoea [Unknown]
